FAERS Safety Report 17949712 (Version 1)
Quarter: 2020Q2

REPORT INFORMATION
  Report Type: Spontaneous
  Country: SE (occurrence: SE)
  Receive Date: 20200626
  Receipt Date: 20200626
  Transmission Date: 20200714
  Serious: Yes (Other)
  Sender: FDA-Public Use
  Company Number: SE-ACCORD-186950

PATIENT
  Age: 75 Year
  Sex: Female

DRUGS (2)
  1. METHOTREXATE. [Suspect]
     Active Substance: METHOTREXATE
     Indication: RHEUMATOID ARTHRITIS
     Dates: start: 19961015
  2. ANTIINFLAMMATORY AND ANTIRHEUMATIC PRODUCTS/NON-STEROIDS [Concomitant]
     Dates: start: 19981027

REACTIONS (1)
  - Non-small cell lung cancer [Recovering/Resolving]

NARRATIVE: CASE EVENT DATE: 20200505
